FAERS Safety Report 21527783 (Version 2)
Quarter: 2022Q4

REPORT INFORMATION
  Report Type: Spontaneous
  Country: US (occurrence: US)
  Receive Date: 20221031
  Receipt Date: 20221031
  Transmission Date: 20230113
  Serious: No
  Sender: FDA-Public Use
  Company Number: US-RECKITT BENCKISER HEALTHCARE INT LIMITED-RB-083563-2022

PATIENT
  Age: 63 Year
  Sex: Male

DRUGS (2)
  1. MUCINEX [Suspect]
     Active Substance: GUAIFENESIN
     Indication: Cough
     Dosage: UNK, QD
     Route: 048
     Dates: start: 20220123, end: 20220201
  2. MUCINEX [Suspect]
     Active Substance: GUAIFENESIN
     Indication: Productive cough

REACTIONS (2)
  - Drug ineffective [Recovered/Resolved]
  - Incorrect product administration duration [Recovered/Resolved]

NARRATIVE: CASE EVENT DATE: 20220123
